FAERS Safety Report 5046924-6 (Version None)
Quarter: 2006Q2

REPORT INFORMATION
  Report Type: 
  Country: None (occurrence: None)
  Receive Date: 20060630
  Receipt Date: 20060620
  Transmission Date: 20061013
  Serious: Yes (Other)
  Sender: FDA-Public Use
  Company Number: 2006078567

PATIENT
  Age: 76 Year
  Sex: Female

DRUGS (2)
  1. ZYVOX [Suspect]
     Indication: PNEUMONIA STAPHYLOCOCCAL
     Dosage: INTRAVENOUS
     Route: 042
     Dates: start: 20060606, end: 20060608
  2. ZYVOX [Suspect]
     Indication: PNEUMONIA STAPHYLOCOCCAL
     Dosage: 600 MG (2 IN 1 D), ORAL
     Route: 048
     Dates: start: 20060609, end: 20060614

REACTIONS (6)
  - BACTERIAL INFECTION [None]
  - ENTEROCOLITIS [None]
  - ESCHERICHIA INFECTION [None]
  - HAEMATOCHEZIA [None]
  - HAEMORRHOIDS [None]
  - MELAENA [None]
